FAERS Safety Report 5861356-6 (Version None)
Quarter: 2008Q3

REPORT INFORMATION
  Report Type: 
  Country: None (occurrence: None)
  Receive Date: 20080827
  Receipt Date: 20080428
  Transmission Date: 20090109
  Serious: No
  Sender: FDA-Public Use
  Company Number: US-ABBOTT-08P-163-0449306-00

PATIENT
  Sex: Female
  Weight: 68.1 kg

DRUGS (5)
  1. COATED PDS [Suspect]
     Indication: BLOOD CHOLESTEROL INCREASED
     Route: 048
     Dates: start: 20080414
  2. METFORMIN HCL [Concomitant]
     Indication: HYPERINSULINAEMIA
     Route: 048
  3. ATACAND ACT 16/12.5 ACS [Concomitant]
     Indication: HYPERTENSION
     Route: 048
  4. FENOFIBRATE [Concomitant]
     Indication: BLOOD CHOLESTEROL INCREASED
     Route: 048
     Dates: start: 20060101
  5. ACETYLSALICYLIC ACID SRT [Concomitant]
     Indication: DRUG USE FOR UNKNOWN INDICATION
     Route: 048

REACTIONS (4)
  - DERMATITIS CONTACT [None]
  - FLUSHING [None]
  - PRURITUS [None]
  - RASH [None]
